FAERS Safety Report 10455397 (Version 1)
Quarter: 2014Q3

REPORT INFORMATION
  Report Type: Spontaneous
  Country: US (occurrence: None)
  Receive Date: 20140915
  Receipt Date: 20140915
  Transmission Date: 20150326
  Serious: Yes (Life-Threatening, Hospitalization)
  Sender: FDA-Public Use
  Company Number: None

PATIENT
  Age: 51 Year
  Sex: Female
  Weight: 61.24 kg

DRUGS (1)
  1. LATUDA [Suspect]
     Active Substance: LURASIDONE HYDROCHLORIDE
     Indication: BIPOLAR I DISORDER
     Route: 048
     Dates: start: 20140901, end: 20140909

REACTIONS (5)
  - Anxiety [None]
  - Homicidal ideation [None]
  - Suicidal ideation [None]
  - Psychotic disorder [None]
  - Agitation [None]

NARRATIVE: CASE EVENT DATE: 20140901
